FAERS Safety Report 7675806-6 (Version None)
Quarter: 2011Q3

REPORT INFORMATION
  Report Type: 
  Country: None (occurrence: None)
  Receive Date: 20110810
  Receipt Date: 20110801
  Transmission Date: 20111222
  Serious: Yes (Other)
  Sender: FDA-Public Use
  Company Number: US-ASTRAZENECA-2010SE01349

PATIENT
  Age: 85 Year
  Sex: Female

DRUGS (3)
  1. ZESTRIL [Suspect]
     Dosage: GENERIC
     Route: 048
  2. ZESTRIL [Suspect]
     Route: 048
  3. TOPROL-XL [Suspect]
     Route: 048

REACTIONS (8)
  - BLOOD CHOLESTEROL INCREASED [None]
  - NIGHTMARE [None]
  - BURNING SENSATION [None]
  - DRUG INEFFECTIVE [None]
  - HYPERTENSION [None]
  - CATARACT OPERATION [None]
  - CATARACT [None]
  - HEART RATE INCREASED [None]
